FAERS Safety Report 12319163 (Version 1)
Quarter: 2016Q1

REPORT INFORMATION
  Report Type: Other
  Country: JP (occurrence: JP)
  Receive Date: 20150415
  Receipt Date: 20150415
  Transmission Date: 20160526
  Serious: Yes (Death)
  Sender: FDA-Public Use
  Company Number: MEDDRA VERSION 19.0 NEW PTS

PATIENT
  Age: 66 Year
  Sex: Male

DRUGS (1)
  1. CARBOPLATIN. [Suspect]
     Active Substance: CARBOPLATIN
     Indication: SMALL CELL LUNG CANCER

REACTIONS (367)
  - Bloch-Sulzberger syndrome [None]
  - Congenital thrombocytopenia [None]
  - Cornelia de-Lange syndrome [None]
  - Ectopic posterior pituitary gland [None]
  - Epidermal naevus syndrome [None]
  - GNE myopathy [None]
  - Mastoid cyst [None]
  - Oesophageal intramural haematoma [None]
  - Visceral venous thrombosis [None]
  - Adverse food reaction [None]
  - Terminal agitation [None]
  - Allergy to surgical sutures [None]
  - Immune recovery uveitis [None]
  - Granulicatella bacteraemia [None]
  - Herpes simplex cervicitis [None]
  - Arterial bypass occlusion [None]
  - Hypobarism [None]
  - Vascular access site contusion [None]
  - Vascular access site dissection [None]
  - Vascular access site pain [None]
  - Vascular access site rupture [None]
  - Vascular access site swelling [None]
  - Vascular graft haemorrhage [None]
  - Anti factor X activity abnormal [None]
  - Anti factor X activity decreased [None]
  - Herpes simplex test [None]
  - Imaging procedure abnormal [None]
  - Model for end stage liver disease score increased [None]
  - Peripheral arthritis [None]
  - Kidney angiomyolipoma [None]
  - Leukaemic cardiac infiltration [None]
  - Marginal zone lymphoma recurrent [None]
  - Marginal zone lymphoma stage II [None]
  - Metastatic nervous system neoplasm [None]
  - Foramen magnum syndrome [None]
  - Froin^s syndrome [None]
  - Quadrantanopia [None]
  - Tick paralysis [None]
  - Manufacturing facilities issue [None]
  - Manufacturing issue [None]
  - Cutaneous somatic symptom disorder [None]
  - Uterine peristalsis absent [None]
  - Hypopharyngeal synechiae [None]
  - Nasal valve collapse [None]
  - Pulmonary resection [None]
  - Tenoplasty [None]
  - Ischaemic mitral regurgitation [None]
  - Myxomatous mitral valve degeneration [None]
  - Lecithin-cholesterol acyltransferase deficiency [None]
  - Multiple cutaneous and uterine leiomyomatosis [None]
  - Thyroid hemiagenesis [None]
  - Tracheal web [None]
  - Trifunctional protein deficiency [None]
  - Oesophageal mucosal tear [None]
  - Critical illness [None]
  - Pseudophakodonesis [None]
  - Biliary dyspepsia [None]
  - H2N2 influenza [None]
  - Lower respiratory tract herpes infection [None]
  - Varicella keratitis [None]
  - Vascular access site infection [None]
  - Accidental exposure to product packaging [None]
  - Arterial bypass thrombosis [None]
  - Coronary bypass stenosis [None]
  - Poor response to ovulation induction [None]
  - Stoma site polyp [None]
  - Cytokine abnormal [None]
  - Herpes virus test [None]
  - Liver function test decreased [None]
  - Liver function test increased [None]
  - Model for end stage liver disease score abnormal [None]
  - PaO2/FiO2 ratio [None]
  - Pseudomonas test [None]
  - Pseudohypercalcaemia [None]
  - Locomotive syndrome [None]
  - Painful os peroneum syndrome [None]
  - Adenoid cystic carcinoma of external auditory canal [None]
  - Oral haemangioma [None]
  - Tumour pseudoprogression [None]
  - Foetal movement disorder [None]
  - Vertebral artery aneurysm [None]
  - Foetal compartment fluid collection [None]
  - Device monitoring procedure not performed [None]
  - Gender dysphoria [None]
  - Genito-pelvic pain/penetration disorder [None]
  - Intrusive thoughts [None]
  - Obsessive-compulsive symptom [None]
  - Selective eating disorder [None]
  - Renal vein varices [None]
  - Haemorrhagic breast cyst [None]
  - Bendopnoea [None]
  - Tumour pruritus [None]
  - Annuloplasty [None]
  - Pelvic floor muscle training [None]
  - Sclerectomy [None]
  - Surgical fixation of rib fracture [None]
  - Banti^s syndrome [None]
  - Foetal tachyarrhythmia [None]
  - Fatty acid oxidation disorder [None]
  - Apituitarism [None]
  - Premature menarche [None]
  - Retinal thickening [None]
  - Vitreous haze [None]
  - Oral pigmentation [None]
  - Nyctalgia [None]
  - Vessel puncture site vesicles [None]
  - Brachyspira infection [None]
  - Granulicatella infection [None]
  - Hepatosplenic abscess [None]
  - Human bocavirus infection [None]
  - Staphylococcal blepharitis [None]
  - Costochondral separation [None]
  - Needle fatigue [None]
  - Postoperative pathological diuresis [None]
  - Restrictive allograft syndrome [None]
  - Anti factor X activity [None]
  - Dopamine transporter scintigraphy [None]
  - Dopamine transporter scintigraphy normal [None]
  - Hepcidin test [None]
  - Human epidermal growth factor receptor increased [None]
  - Inflammatory marker decreased [None]
  - Prohormone brain natriuretic peptide abnormal [None]
  - Trial of void [None]
  - Chondroporosis [None]
  - Immunoglobulin G4 related disease [None]
  - Periosteal haematoma [None]
  - Rachitic rosary [None]
  - Marginal zone lymphoma stage I [None]
  - Naevus lipomatosus cutaneous superficialis [None]
  - Viral acanthoma [None]
  - Basilar artery aneurysm [None]
  - Neurovascular conflict [None]
  - Non-24-hour sleep-wake disorder [None]
  - Foetal growth abnormality [None]
  - Device use issue [None]
  - Alexithymia [None]
  - Algophobia [None]
  - Depersonalisation/derealisation disorder [None]
  - Gambling disorder [None]
  - Myxoid cyst [None]
  - Pseudofolliculitis [None]
  - Bladder training [None]
  - Immunochemotherapy [None]
  - Medical procedure [None]
  - Tumour treating fields therapy [None]
  - Unevaluable therapy [None]
  - Vascular access placement [None]
  - Diabetic arteritis [None]
  - Paroxysmal atrioventricular block [None]
  - Hereditary motor and sensory neuropathy [None]
  - Vein of Galen aneurysmal malformation [None]
  - Cornea verticillata [None]
  - Absent bowel movement [None]
  - Anal incontinence [None]
  - Gingival discomfort [None]
  - Non-cirrhotic portal hypertension [None]
  - Funguria [None]
  - HIV viraemia [None]
  - Vessel puncture site cellulitis [None]
  - Coronary vascular graft stenosis [None]
  - Polymer fume fever [None]
  - Shrapnel wound [None]
  - Vascular graft restenosis [None]
  - Cardiac clearance [None]
  - Dopamine transporter scintigraphy abnormal [None]
  - Drug clearance [None]
  - Procalcitonin normal [None]
  - Prohormone brain natriuretic peptide [None]
  - Prohormone brain natriuretic peptide increased [None]
  - Adult failure to thrive [None]
  - Infantile back arching [None]
  - Interspinous osteoarthritis [None]
  - Paraneoplastic arthritis [None]
  - Spinal flattening [None]
  - Marginal zone lymphoma stage IV [None]
  - Arachnoid web [None]
  - Neuromyelitis optica spectrum disorder [None]
  - Shift work disorder [None]
  - Mobile medical application issue [None]
  - Disruptive mood dysregulation disorder [None]
  - Frustration tolerance decreased [None]
  - Persistent depressive disorder [None]
  - Rapid eye movement sleep behaviour disorder [None]
  - End stage renal disease [None]
  - Obstructive nephropathy [None]
  - Pituitary amenorrhoea [None]
  - Infantile apnoea [None]
  - Oropharyngeal cobble stone mucosa [None]
  - Apitherapy [None]
  - Rhizolysis [None]
  - Small intestinal obstruction reduction [None]
  - Brachial artery entrapment syndrome [None]
  - Cardiac steatosis [None]
  - Alternating hemiplegia of childhood [None]
  - Familial infantile bilateral striatal necrosis [None]
  - Hereditary hypophosphataemic rickets [None]
  - Hyperinsulinism syndrome [None]
  - Left-to-right cardiac shunt [None]
  - Cutaneous horn of eyelid [None]
  - Scleral deposits [None]
  - Intestinal varices haemorrhage [None]
  - Device related thrombosis [None]
  - Puncture site hernia [None]
  - Post measles blindness [None]
  - Vascular stent infection [None]
  - Vascular access site haemorrhage [None]
  - Vascular graft stenosis [None]
  - Blood 1,5-anhydroglucitol test [None]
  - Computerised tomogram intestine [None]
  - Herpes simplex test negative [None]
  - Procalcitonin decreased [None]
  - Total complement activity decreased [None]
  - Total complement activity increased [None]
  - Transcranial electrical motor evoked potential monitoring [None]
  - Bursal haematoma [None]
  - Chondrodynia [None]
  - Newborn head moulding [None]
  - Somatic dysfunction [None]
  - Hairy cell leukaemia recurrent [None]
  - Malignant meningioma metastatic [None]
  - Malignant neoplasm papilla of Vater [None]
  - Marginal zone lymphoma refractory [None]
  - Marginal zone lymphoma stage III [None]
  - Skin squamous cell carcinoma metastatic [None]
  - Intensive care unit acquired weakness [None]
  - Neurosarcoidosis [None]
  - Presbyastasis [None]
  - Manufacturing equipment issue [None]
  - Manufacturing materials issue [None]
  - Manufacturing production issue [None]
  - Product supply issue [None]
  - Defiant behaviour [None]
  - Gastrointestinal somatic symptom disorder [None]
  - Scatolia [None]
  - Somatic symptom disorder of pregnancy [None]
  - Suicide threat [None]
  - Ureterolithiasis [None]
  - Impaired ability to use machinery [None]
  - Sensory integration therapy [None]
  - Intravascular gas [None]
  - Paravalvular aortic regurgitation [None]
  - Adult polyglucosan body disease [None]
  - Citrate transporter deficiency [None]
  - Intracranial arterial fenestration [None]
  - Rett syndrome [None]
  - Welander distal myopathy [None]
  - Multiple organ dysfunction syndrome [None]
  - Acute on chronic liver failure [None]
  - Acquired complement deficiency disease [None]
  - Immune-mediated adverse reaction [None]
  - Bacterial parotitis [None]
  - Peripheral artery bypass graft stenosis [None]
  - Vascular access site inflammation [None]
  - Vascular access site pseudoaneurysm [None]
  - Vascular access site rash [None]
  - Anti factor X activity increased [None]
  - Anti factor X activity normal [None]
  - Hepcidin decreased [None]
  - Herpes simplex test positive [None]
  - Procalcitonin abnormal [None]
  - Total complement activity test [None]
  - Ultrasound foetal abnormal [None]
  - Young mania rating scale [None]
  - Joint microhaemorrhage [None]
  - Muscle hypoxia [None]
  - Oncogenic osteomalacia [None]
  - Benign hepatobiliary neoplasm [None]
  - Cholangiosarcoma [None]
  - Metastases to tonsils [None]
  - Musculoskeletal cancer [None]
  - Tumour obstruction [None]
  - Craniocervical syndrome [None]
  - Intracranial mass [None]
  - Sensory processing disorder [None]
  - Vestibular migraine [None]
  - Medical device monitoring error [None]
  - Cardiovascular somatic symptom disorder [None]
  - Neurologic somatic symptom disorder [None]
  - Pulmonary capillary haemangiomatosis [None]
  - Goniotomy [None]
  - Medical device repositioning [None]
  - Portal shunt procedure [None]
  - Proctectomy [None]
  - Viscocanalostomy [None]
  - Vocal cord operation [None]
  - Voice therapy [None]
  - Adventitial cystic disease [None]
  - Atrioventricular node dispersion [None]
  - Lysosomal acid lipase deficiency [None]
  - Pyruvate carboxylase deficiency [None]
  - Retinal collateral vessels [None]
  - Abdominal fat apron [None]
  - Oesophagopleural fistula [None]
  - Omental necrosis [None]
  - Palatal ulcer [None]
  - Tongue discomfort [None]
  - Helicobacter duodenitis [None]
  - Lumbar spinal drainage complication [None]
  - Vascular access site complication [None]
  - Vascular access site haematoma [None]
  - Ankle brachial index abnormal [None]
  - Foetal musculoskeletal imaging abnormal [None]
  - Foetal renal imaging abnormal [None]
  - Fractional flow reserve [None]
  - Human epidermal growth factor receptor decreased [None]
  - Human epidermal growth factor receptor negative [None]
  - Transcranial electrical motor evoked potential monitoring abnormal [None]
  - Periostosis [None]
  - Gastroenteropancreatic neuroendocrine tumour disease [None]
  - Epileptic encephalopathy [None]
  - Sporadic infantile bilateral striatal necrosis [None]
  - Manufacturing laboratory controls issue [None]
  - Speech sound disorder [None]
  - Bladder metaplasia [None]
  - Perineal disorder [None]
  - Pulmonary nodular lymphoid hyperplasia [None]
  - Sulcus vocalis [None]
  - Diabetic cheiroarthropathy [None]
  - Bioptic surgery [None]
  - Duodeno-jejunal bypass sleeve therapy [None]
  - Gastrorrhaphy [None]
  - Foetal anaemia [None]
  - Congenital heart valve incompetence [None]
  - Congenital spinal stenosis [None]
  - Early onset familial Alzheimer^s disease [None]
  - Mismatch repair cancer syndrome [None]
  - Primary hypercholesterolaemia [None]
  - Supernumerary vertebra [None]
  - Choristoma [None]
  - Portosplenomesenteric venous thrombosis [None]
  - Dust allergy [None]
  - Haemorrhagic pneumonia [None]
  - Infective scleritis [None]
  - Accidental exposure to product packaging by child [None]
  - Craniofacial fracture [None]
  - Procedural pneumothorax [None]
  - Vascular access malfunction [None]
  - Vascular access site occlusion [None]
  - Vascular access site oedema [None]
  - Bilirubin urine present [None]
  - Cytokine test [None]
  - Factor Xa activity test [None]
  - Foetal gastrointestinal tract imaging abnormal [None]
  - Hepatobiliary scan normal [None]
  - Prohormone brain natriuretic peptide decreased [None]
  - Uraemic myopathy [None]
  - Carcinoma ex-pleomorphic adenoma [None]
  - Myelolipoma [None]
  - Myeloproliferative neoplasm [None]
  - Limbic encephalitis [None]
  - Contraindicated device used [None]
  - Product availability issue [None]
  - Disinhibited social engagement disorder of childhood [None]
  - Illness anxiety disorder [None]
  - Somatic symptom disorder [None]
  - Somatoform genitourinary disorder [None]
  - C3 glomerulopathy [None]
  - Hyponatriuria [None]
  - Aquagenic wrinkling of palms [None]
  - Hemosiderin stain [None]
  - Electronic cigarette user [None]
  - Patient uncooperative [None]
  - Cardiac contractility modulation therapy [None]
  - Metabolic surgery [None]
  - Splenorenal shunt procedure [None]
  - Turbinoplasty [None]
  - Venous angioplasty [None]
